FAERS Safety Report 18483670 (Version 3)
Quarter: 2020Q4

REPORT INFORMATION
  Report Type: Spontaneous
  Country: US (occurrence: US)
  Receive Date: 20201109
  Receipt Date: 20201216
  Transmission Date: 20210114
  Serious: Yes (Life-Threatening, Other)
  Sender: FDA-Public Use
  Company Number: US-GILEAD-2020-0503521

PATIENT
  Age: 85 Year
  Sex: Male
  Weight: 91.02 kg

DRUGS (18)
  1. DEXAMETHASONE. [Concomitant]
     Active Substance: DEXAMETHASONE
  2. PRAMIPEXOLE. [Concomitant]
     Active Substance: PRAMIPEXOLE
  3. ACETAMINOPHEN. [Concomitant]
     Active Substance: ACETAMINOPHEN
  4. VEKLURY [Suspect]
     Active Substance: REMDESIVIR
     Indication: COVID-19
     Dosage: 200 MG, QD
     Route: 042
     Dates: start: 20201101, end: 20201101
  5. ALBUTEROL [SALBUTAMOL] [Concomitant]
     Active Substance: ALBUTEROL
  6. MORPHINE [Concomitant]
     Active Substance: MORPHINE
  7. ASCORBIC ACID. [Concomitant]
     Active Substance: ASCORBIC ACID
  8. CHOLECALCIFEROL [Concomitant]
     Active Substance: CHOLECALCIFEROL
  9. INSULIN LISPRO [Concomitant]
     Active Substance: INSULIN LISPRO
  10. MELATONIN [Concomitant]
     Active Substance: MELATONIN
  11. VEKLURY [Suspect]
     Active Substance: REMDESIVIR
     Dosage: 100 MG, QD (250 ML/HR) SEE NARRATIVE FOR ADDITIONAL DOSING INFORMATION
     Route: 042
     Dates: start: 20201102, end: 20201103
  12. ACETAMINOPHEN;CODEINE [Concomitant]
     Active Substance: ACETAMINOPHEN\CODEINE PHOSPHATE
     Dosage: UNK, ADMINISTERED 13 MINUTES BEFORE REMDESIVIR ADMINISTRATION
     Dates: start: 20201103
  13. ATORVASTATIN [Concomitant]
     Active Substance: ATORVASTATIN
  14. GUAIFENESIN. [Concomitant]
     Active Substance: GUAIFENESIN
  15. MUPIROCIN. [Concomitant]
     Active Substance: MUPIROCIN
  16. ZINC SULFATE. [Concomitant]
     Active Substance: ZINC SULFATE
  17. CEFTRIAXONE. [Suspect]
     Active Substance: CEFTRIAXONE
     Indication: PRODUCT USED FOR UNKNOWN INDICATION
     Dosage: 2 G (ADMINISTERED 8 MINUTES BEFORE REMDESIVIR ON 03-NOV-2020)
     Route: 065
     Dates: start: 20201101, end: 20201103
  18. AZITHROMYCIN ANHYDROUS. [Concomitant]
     Active Substance: AZITHROMYCIN ANHYDROUS

REACTIONS (1)
  - Anaphylactic reaction [Recovered/Resolved]

NARRATIVE: CASE EVENT DATE: 20201103
